FAERS Safety Report 4851249-5 (Version None)
Quarter: 2005Q4

REPORT INFORMATION
  Report Type: 
  Country: None (occurrence: None)
  Receive Date: 20051208
  Receipt Date: 20051123
  Transmission Date: 20060501
  Serious: Yes (Hospitalization)
  Sender: FDA-Public Use
  Company Number: 2005-02435

PATIENT
  Age: 66 Year
  Sex: Female
  Weight: 70 kg

DRUGS (3)
  1. VELCADE [Suspect]
     Indication: MULTIPLE MYELOMA
     Dosage: 1.70 MG, UNK, INTRAVENOUS
     Route: 042
     Dates: start: 20051010
  2. NICARDIPINE HCL [Suspect]
     Dosage: 1.00 UNK, QD, ORAL
     Route: 048
     Dates: start: 20030315
  3. LYTOS(CLODRONATE DISODIUM) [Suspect]
     Dosage: 2.00 UNK, QD, ORAL
     Route: 048
     Dates: start: 20040115

REACTIONS (2)
  - BACK PAIN [None]
  - RENAL COLIC [None]
